FAERS Safety Report 5707127-2 (Version None)
Quarter: 2008Q2

REPORT INFORMATION
  Report Type: 
  Country: None (occurrence: None)
  Receive Date: 20080414
  Receipt Date: 20080414
  Transmission Date: 20081010
  Serious: No
  Sender: FDA-Public Use
  Company Number: None

PATIENT
  Age: 44 Year
  Sex: Female
  Weight: 61.2356 kg

DRUGS (1)
  1. ACYCLOVIR [Suspect]
     Indication: HERPES VIRUS INFECTION
     Dosage: 4 TIMES DAILY
     Dates: start: 20080409, end: 20080414

REACTIONS (3)
  - ABNORMAL DREAMS [None]
  - PAIN [None]
  - PARAESTHESIA [None]
